FAERS Safety Report 23994689 (Version 1)
Quarter: 2024Q2

REPORT INFORMATION
  Report Type: Report from Study
  Country: IT (occurrence: IT)
  Receive Date: 20240620
  Receipt Date: 20240620
  Transmission Date: 20240715
  Serious: Yes (Other)
  Sender: FDA-Public Use
  Company Number: None

PATIENT
  Age: 57 Year
  Sex: Female

DRUGS (2)
  1. PACLITAXEL [Suspect]
     Active Substance: PACLITAXEL
     Indication: Breast cancer
     Dosage: 75 MILLIGRAM, QW (THERAPY START 20-FEB-24 - WEEKLY THERAPY- 9 WEEKS)
     Route: 042
     Dates: start: 20240416, end: 20240416
  2. TRASTUZUMAB [Suspect]
     Active Substance: TRASTUZUMAB
     Indication: Breast cancer
     Dosage: 150 MILLIGRAM, QW (THERAPY START 20-FEB-24 - WEEKLY THERAPY - 9 WEEKS)
     Route: 042
     Dates: start: 20240416, end: 20240416

REACTIONS (2)
  - Pneumonia [Recovering/Resolving]
  - Off label use [Recovering/Resolving]

NARRATIVE: CASE EVENT DATE: 20240416
